FAERS Safety Report 9685946 (Version 1)
Quarter: 2013Q4

REPORT INFORMATION
  Report Type: Spontaneous
  Country: US (occurrence: US)
  Receive Date: 20131113
  Receipt Date: 20131113
  Transmission Date: 20140711
  Serious: No
  Sender: FDA-Public Use
  Company Number: US-ALLERGAN-1310784US

PATIENT
  Age: 65 Year
  Sex: Female

DRUGS (4)
  1. COMBIGAN[R] [Suspect]
     Indication: BORDERLINE GLAUCOMA
     Dosage: UNK
     Dates: start: 20130709
  2. FLUOROMETHOLONE, 0.1% [Concomitant]
     Indication: PRODUCT USED FOR UNKNOWN INDICATION
     Dosage: 1 GTT, QD
     Route: 047
  3. ZYRTEC [Concomitant]
     Indication: SEASONAL ALLERGY
     Dosage: UNK UNK, QD
     Route: 048
  4. RESTASIS [Concomitant]
     Indication: DRY EYE
     Dosage: 2 GTT, BID
     Route: 047

REACTIONS (4)
  - Pruritus [Unknown]
  - Sleep disorder [Unknown]
  - Rash erythematous [Unknown]
  - Rhinalgia [Recovered/Resolved]
